FAERS Safety Report 24268076 (Version 2)
Quarter: 2024Q4

REPORT INFORMATION
  Report Type: Spontaneous
  Country: JP (occurrence: JP)
  Receive Date: 20240830
  Receipt Date: 20241204
  Transmission Date: 20250115
  Serious: Yes (Other)
  Sender: CHEPLAPHARM
  Company Number: JP-CLGN-JP-CLI-2024-010494

PATIENT
  Age: 82 Year
  Sex: Male
  Weight: 55 kg

DRUGS (3)
  1. HYDROXYUREA [Suspect]
     Active Substance: HYDROXYUREA
     Indication: Polycythaemia vera
     Dosage: 500 MILLIGRAM, BID?DAILY DOSE: 1000 MILLIGRAM
     Route: 048
     Dates: start: 20110224, end: 20240814
  2. OLMESARTAN [Concomitant]
     Active Substance: OLMESARTAN
     Route: 048
     Dates: start: 20131017, end: 20240814
  3. ASPIRIN [Concomitant]
     Active Substance: ASPIRIN
     Route: 048
     Dates: start: 20110224, end: 20240814

REACTIONS (1)
  - Hepatitis B reactivation [Recovering/Resolving]

NARRATIVE: CASE EVENT DATE: 20231221
